FAERS Safety Report 19561436 (Version 1)
Quarter: 2021Q3

REPORT INFORMATION
  Report Type: Spontaneous
  Country: US (occurrence: US)
  Receive Date: 20210715
  Receipt Date: 20210715
  Transmission Date: 20211014
  Serious: Yes (Other)
  Sender: FDA-Public Use
  Company Number: None

PATIENT
  Age: 65 Year
  Sex: Female
  Weight: 52.65 kg

DRUGS (23)
  1. BEET ROOT [Concomitant]
  2. MEGESTROL ACETATE 20MG [Suspect]
     Active Substance: MEGESTROL ACETATE
     Indication: UTERINE POLYP
     Dosage: ?          QUANTITY:30 TABLET(S);?
     Route: 048
     Dates: start: 20181203, end: 20190112
  3. MAGNESIUM [Concomitant]
     Active Substance: MAGNESIUM
  4. NULASTA [Concomitant]
  5. CEFUROXIME. [Concomitant]
     Active Substance: CEFUROXIME
  6. SELENIUM [Concomitant]
     Active Substance: SELENIUM
  7. NEUPOGEN [Concomitant]
     Active Substance: FILGRASTIM
  8. TURMERIC [Concomitant]
     Active Substance: HERBALS\TURMERIC
  9. MEDROXYPROGESTERONE 10MG [Suspect]
     Active Substance: MEDROXYPROGESTERONE ACETATE
     Indication: UTERINE POLYP
     Dosage: ?          QUANTITY:30 TABLET(S);?
     Route: 048
     Dates: start: 20181212, end: 20190112
  10. CHEMOTHERAPY A:DOXORUBICIN SN PACLITAXEL [Concomitant]
  11. LEVOFLOXACIN. [Concomitant]
     Active Substance: LEVOFLOXACIN
  12. DANDEION [Concomitant]
  13. NIACIN. [Concomitant]
     Active Substance: NIACIN
  14. POTASSIUM [Concomitant]
     Active Substance: POTASSIUM
  15. BIOTIN [Concomitant]
     Active Substance: BIOTIN
  16. COENZYME Q10 [Concomitant]
     Active Substance: DIETARY SUPPLEMENT\UBIDECARENONE
  17. CLARADIN [Concomitant]
  18. VITAMIN B COMPLEX [Concomitant]
     Active Substance: CYANOCOBALAMIN\DEXPANTHENOL\NIACINAMIDE\PYRIDOXINE HYDROCHLORIDE\RIBOFLAVIN 5^-PHOSPHATE SODIUM\THIAMINE HYDROCHLORIDE\VITAMIN B COMPLEX
  19. VITAMIN C [Concomitant]
     Active Substance: ASCORBIC ACID
  20. ONE?A?DAY MULTIVITAMIN [Concomitant]
  21. VITAMIN D [Concomitant]
     Active Substance: VITAMIN D NOS
  22. CALCIUM [Concomitant]
     Active Substance: CALCIUM
  23. RESVERATROL [Concomitant]
     Active Substance: DIETARY SUPPLEMENT\RESVERATROL

REACTIONS (2)
  - Breast cancer [None]
  - Irritability [None]

NARRATIVE: CASE EVENT DATE: 20210316
